FAERS Safety Report 13192123 (Version 2)
Quarter: 2017Q1

REPORT INFORMATION
  Report Type: Report from Study
  Country: CA (occurrence: CA)
  Receive Date: 20170207
  Receipt Date: 20170222
  Transmission Date: 20170428
  Serious: Yes (Other)
  Sender: FDA-Public Use
  Company Number: CA-EMD SERONO-8139293

PATIENT
  Age: 38 Year
  Sex: Male

DRUGS (1)
  1. REBIF [Suspect]
     Active Substance: INTERFERON BETA-1A
     Indication: MULTIPLE SCLEROSIS
     Route: 058
     Dates: start: 20161214, end: 20170124

REACTIONS (5)
  - Feeling abnormal [Recovered/Resolved]
  - Self-injurious ideation [Unknown]
  - Unevaluable event [Not Recovered/Not Resolved]
  - Anxiety [Recovered/Resolved]
  - Helplessness [Recovered/Resolved]

NARRATIVE: CASE EVENT DATE: 201701
